FAERS Safety Report 23744893 (Version 1)
Quarter: 2024Q2

REPORT INFORMATION
  Report Type: Spontaneous
  Country: SI (occurrence: SI)
  Receive Date: 20240415
  Receipt Date: 20240415
  Transmission Date: 20240716
  Serious: Yes (Other)
  Sender: FDA-Public Use
  Company Number: None

PATIENT
  Age: 43 Year
  Sex: Male

DRUGS (2)
  1. METHOTREXATE SODIUM [Suspect]
     Active Substance: METHOTREXATE SODIUM
     Indication: Product used for unknown indication
     Dosage: 15 MG, 1 DAY IN A WEEK
     Route: 048
  2. Folacin [Concomitant]
     Indication: Product used for unknown indication
     Dosage: 1X1 TBL PER WEEK, THE DAY AFTER TAKING METHOTREXATE
     Route: 048

REACTIONS (2)
  - Drug-induced liver injury [Unknown]
  - Liver disorder [Unknown]
